FAERS Safety Report 4501729-7 (Version None)
Quarter: 2004Q4

REPORT INFORMATION
  Report Type: 
  Country: None (occurrence: None)
  Receive Date: 20040927
  Receipt Date: 20040819
  Transmission Date: 20050328
  Serious: Yes (Other)
  Sender: FDA-Public Use
  Company Number: USA040568568

PATIENT
  Age: 6 Year
  Sex: Male
  Weight: 23 kg

DRUGS (3)
  1. STRATTERA [Suspect]
     Indication: ATTENTION DEFICIT/HYPERACTIVITY DISORDER
     Dosage: 40 MG DAY
     Dates: start: 20031201, end: 20040525
  2. RITALIN [Concomitant]
  3. LANOXIN [Concomitant]

REACTIONS (7)
  - BLOOD PRESSURE INCREASED [None]
  - CRYING [None]
  - DECREASED APPETITE [None]
  - ERUCTATION [None]
  - HEART RATE INCREASED [None]
  - MOOD SWINGS [None]
  - PRESCRIBED OVERDOSE [None]
